FAERS Safety Report 6155983-9 (Version None)
Quarter: 2009Q2

REPORT INFORMATION
  Report Type: 
  Country: None (occurrence: None)
  Receive Date: 20090415
  Receipt Date: 20090413
  Transmission Date: 20091009
  Serious: Yes (Other)
  Sender: FDA-Public Use
  Company Number: ES-BRISTOL-MYERS SQUIBB COMPANY-14584684

PATIENT
  Age: 34 Year
  Sex: Male

DRUGS (3)
  1. SUSTIVA [Suspect]
     Indication: HIV INFECTION
     Dates: start: 20030128, end: 20051110
  2. DIDANOSINE [Suspect]
     Indication: HIV INFECTION
     Dates: start: 20030128, end: 20051110
  3. LAMIVUDINE [Suspect]
     Indication: HIV INFECTION
     Dates: start: 20030128, end: 20051110

REACTIONS (2)
  - IMMUNE RECONSTITUTION SYNDROME [None]
  - PROGRESSIVE MULTIFOCAL LEUKOENCEPHALOPATHY [None]
